FAERS Safety Report 7531329-6 (Version None)
Quarter: 2011Q2

REPORT INFORMATION
  Report Type: 
  Country: None (occurrence: None)
  Receive Date: 20110608
  Receipt Date: 20110601
  Transmission Date: 20111010
  Serious: Yes (Life-Threatening, Hospitalization)
  Sender: FDA-Public Use
  Company Number: FR-SOLVAY-00211004281

PATIENT
  Age: 677 Month
  Sex: Male

DRUGS (11)
  1. JANUVIA [Suspect]
     Indication: TYPE 2 DIABETES MELLITUS
     Dosage: DAILY DOSE: 100 MILLIGRAM(S)
     Route: 048
     Dates: start: 20091001
  2. BISOPROLOL FUMARATE [Suspect]
     Indication: CARDIOMYOPATHY
     Dosage: DAILY DOSE: 2.5 MILLIGRAM(S)
     Route: 048
     Dates: start: 20091201
  3. KAYEXALATE [Suspect]
     Indication: HYPERKALAEMIA
     Dosage: DAILY DOSE:  UNKNOWN, AS USED: 1 DOSAGE FORM
     Route: 048
     Dates: start: 20100501
  4. ASPIRIN [Suspect]
     Indication: CONGESTIVE CARDIOMYOPATHY
     Dosage: DAILY DOSE: 175 MILLIGRAM(S)
     Route: 048
     Dates: start: 20091201
  5. MINIRIN [Suspect]
     Indication: DIABETES INSIPIDUS
     Dosage: DAILY DOSE: 900 MICROGRAM(S)
     Route: 048
     Dates: start: 19950101
  6. DIAMICRON [Suspect]
     Indication: TYPE 2 DIABETES MELLITUS
     Dosage: DAILY DOSE: 30 MILLIGRAM(S)
     Route: 048
  7. PERINDOPRIL ERBUMINE [Suspect]
     Indication: CONGESTIVE CARDIOMYOPATHY
     Dosage: DAILY DOSE: 2.5 MILLIGRAM(S)
     Route: 048
     Dates: start: 20091201
  8. ALLOPURINOL [Suspect]
     Indication: HYPERURICAEMIA
     Dosage: DAILY DOSE: 300 MILLIGRAM(S)
     Route: 048
  9. FENOFIBRATE [Suspect]
     Indication: TYPE 2 DIABETES MELLITUS
     Dosage: DAILY DOSE: 200 MILLIGRAM(S)
     Route: 048
  10. PRAZOSIN HCL [Suspect]
     Indication: HYPERTENSION
     Dosage: DAILY DOSE: 5 MILLIGRAM(S)
     Route: 048
     Dates: end: 20100201
  11. ACTOS [Suspect]
     Indication: TYPE 2 DIABETES MELLITUS
     Dosage: DAILY DOSE: 30 MILLIGRAM(S)
     Route: 048
     Dates: start: 20060301, end: 20100201

REACTIONS (1)
  - BLADDER CANCER [None]
